FAERS Safety Report 8226720-9 (Version None)
Quarter: 2012Q1

REPORT INFORMATION
  Report Type: 
  Country: None (occurrence: None)
  Receive Date: 20120322
  Receipt Date: 20120308
  Transmission Date: 20120608
  Serious: Yes (Other)
  Sender: FDA-Public Use
  Company Number: US-BAYER-2011-078777

PATIENT
  Age: 54 Year
  Sex: Female

DRUGS (5)
  1. YASMIN [Suspect]
     Dosage: UNK
     Dates: start: 20080125, end: 20090724
  2. FLUOXETINE [Concomitant]
     Dosage: 20 MG, UNK
  3. YAZ [Suspect]
     Dosage: UNK
     Dates: start: 20080125, end: 20090724
  4. DROSPIRENONE AND ETHINYL ESTRADIOL [Suspect]
     Dosage: UNK
     Dates: start: 20080125, end: 20090724
  5. METHYLPREDNISOLONE [Concomitant]
     Dosage: 4 MG, UNK

REACTIONS (6)
  - PULMONARY EMBOLISM [None]
  - GENERAL PHYSICAL HEALTH DETERIORATION [None]
  - EMOTIONAL DISTRESS [None]
  - INJURY [None]
  - PAIN [None]
  - ANXIETY [None]
